FAERS Safety Report 7835176-7 (Version None)
Quarter: 2011Q4

REPORT INFORMATION
  Report Type: 
  Country: None (occurrence: None)
  Receive Date: 20111020
  Receipt Date: 20111010
  Transmission Date: 20120403
  Serious: Yes (Other)
  Sender: FDA-Public Use
  Company Number: GER/UKI/11/0021499

PATIENT
  Age: 12 Year
  Sex: Female

DRUGS (1)
  1. FLUOXETINE HYDROCHLORIDE [Suspect]
     Indication: MYASTHENIC SYNDROME
     Dosage: 60 MG, 1 IN 1 D

REACTIONS (9)
  - MUSCLE ATROPHY [None]
  - HYPOTONIA [None]
  - FAILURE TO THRIVE [None]
  - FACIAL PARESIS [None]
  - SCOLIOSIS [None]
  - OFF LABEL USE [None]
  - RESPIRATORY FAILURE [None]
  - MUSCULAR WEAKNESS [None]
  - EXTRAOCULAR MUSCLE PARESIS [None]
